FAERS Safety Report 9526467 (Version 1)
Quarter: 2013Q3

REPORT INFORMATION
  Report Type: Spontaneous
  Country: FR (occurrence: FR)
  Receive Date: 20130916
  Receipt Date: 20130916
  Transmission Date: 20140515
  Serious: Yes (Other)
  Sender: FDA-Public Use
  Company Number: FR-TEVA-430990ISR

PATIENT
  Age: 43 Year
  Sex: Male

DRUGS (4)
  1. BUPRENORPHINE [Suspect]
     Indication: INTENTIONAL DRUG MISUSE
     Dosage: 8MG CRUSHED TABLETS
     Route: 055
  2. BUPRENORPHINE [Suspect]
     Indication: INTENTIONAL DRUG MISUSE
     Dosage: LINE CRUSHED TABLETS (USUAL DOSAGE)
     Route: 055
  3. BUPRENORPHINE [Suspect]
     Route: 065
  4. DRONABINOL [Concomitant]
     Dosage: OCCASIONALLY
     Route: 065

REACTIONS (4)
  - Linear IgA disease [Recovered/Resolved]
  - Intentional drug misuse [Recovered/Resolved]
  - Drug abuse [Unknown]
  - Epidermal necrosis [Unknown]
